FAERS Safety Report 15762058 (Version 1)
Quarter: 2018Q4

REPORT INFORMATION
  Report Type: Spontaneous
  Country: US (occurrence: US)
  Receive Date: 20181226
  Receipt Date: 20181226
  Transmission Date: 20190205
  Serious: Yes (Other)
  Sender: FDA-Public Use
  Company Number: None

PATIENT
  Age: 25 Year
  Sex: Male
  Weight: 56.25 kg

DRUGS (5)
  1. TRETINOIN. [Concomitant]
     Active Substance: TRETINOIN
  2. VYVANSE [Concomitant]
     Active Substance: LISDEXAMFETAMINE DIMESYLATE
  3. DOXYCYCLINE HYCALATE DELAYED RELEASE TABLETS, USP [Suspect]
     Active Substance: DOXYCYCLINE HYCLATE
     Indication: ACNE
     Dosage: ?          QUANTITY:1 TABLET(S);?
     Route: 048
  4. NEUAC [Concomitant]
     Active Substance: BENZOYL PEROXIDE\CLINDAMYCIN PHOSPHATE
  5. WELLBUTRIN [Concomitant]
     Active Substance: BUPROPION HYDROCHLORIDE

REACTIONS (5)
  - Mood altered [None]
  - Suicidal ideation [None]
  - Depressed mood [None]
  - Feeling abnormal [None]
  - Inappropriate affect [None]

NARRATIVE: CASE EVENT DATE: 20181220
